FAERS Safety Report 16836906 (Version 1)
Quarter: 2019Q3

REPORT INFORMATION
  Report Type: Report from Study
  Country: None (occurrence: FR)
  Receive Date: 20190923
  Receipt Date: 20190923
  Transmission Date: 20191005
  Serious: Yes (Other)
  Sender: FDA-Public Use
  Company Number: FR-ABBVIE-19K-056-2930516-00

PATIENT
  Sex: Female
  Weight: 72 kg

DRUGS (2)
  1. HUMIRA [Suspect]
     Active Substance: ADALIMUMAB
     Indication: PSORIASIS
     Route: 058
     Dates: start: 20181016, end: 20181023
  2. HUMIRA [Suspect]
     Active Substance: ADALIMUMAB
     Route: 058
     Dates: start: 20181023, end: 20181218

REACTIONS (2)
  - Peritonitis [Recovered/Resolved]
  - Ovarian disorder [Unknown]

NARRATIVE: CASE EVENT DATE: 20190128
